FAERS Safety Report 9517407 (Version 1)
Quarter: 2013Q1

REPORT INFORMATION
  Report Type: Spontaneous
  Country: US (occurrence: None)
  Receive Date: 20130305
  Receipt Date: 20130305
  Transmission Date: 20140127
  Serious: Yes (Other)
  Sender: FDA-Public Use
  Company Number: 163-21880-12041528

PATIENT
  Age: 61 Year
  Sex: Female
  Weight: 66.68 kg

DRUGS (4)
  1. REVLIMIB (LENALIDOMIDE) (CAPSULES) [Suspect]
     Indication: PLASMA CELL MYELOMA
     Dosage: 21 IN 28 DAYS
     Route: 048
     Dates: start: 20110103
  2. ZOCOR (SIMVASTATIN) (UNKNOWN) [Concomitant]
  3. DEXAMETHASOE (MEXAMETHASONE) (UNKNOWN) [Concomitant]
  4. NEURONTIN [Suspect]

REACTIONS (3)
  - Tongue disorder [None]
  - Neuropathy peripheral [None]
  - Muscle spasms [None]
